FAERS Safety Report 5148514-3 (Version None)
Quarter: 2006Q4

REPORT INFORMATION
  Report Type: 
  Country: None (occurrence: None)
  Receive Date: 20061106
  Receipt Date: 20061030
  Transmission Date: 20070319
  Serious: Yes (Other)
  Sender: FDA-Public Use
  Company Number: GXKR2006GB06803

PATIENT
  Age: 72 Year
  Sex: Female

DRUGS (3)
  1. AMOXICILLIN [Suspect]
     Indication: RESPIRATORY TRACT INFECTION
     Dosage: 500 MG, ORAL
     Route: 048
     Dates: start: 20060811, end: 20060811
  2. BENDROFLUMETHIAZIDE [Concomitant]
  3. IRBESARTAN [Concomitant]

REACTIONS (2)
  - RASH PRURITIC [None]
  - SWELLING FACE [None]
